FAERS Safety Report 18276781 (Version 4)
Quarter: 2020Q4

REPORT INFORMATION
  Report Type: Spontaneous
  Country: FR (occurrence: FR)
  Receive Date: 20200917
  Receipt Date: 20201221
  Transmission Date: 20210113
  Serious: Yes (Hospitalization, Other)
  Sender: FDA-Public Use
  Company Number: NVSC2020FR251637

PATIENT
  Age: 82 Year
  Sex: Male

DRUGS (4)
  1. AZATHIOPRINE. [Suspect]
     Active Substance: AZATHIOPRINE
     Indication: OCULAR MYASTHENIA
  2. PREDNISONE. [Suspect]
     Active Substance: PREDNISONE
     Indication: MUSCULAR WEAKNESS
     Dosage: 15 MG, QD
     Route: 065
     Dates: start: 2016
  3. PREDNISONE. [Suspect]
     Active Substance: PREDNISONE
     Indication: OCULAR MYASTHENIA
  4. AZATHIOPRINE. [Suspect]
     Active Substance: AZATHIOPRINE
     Indication: MUSCULAR WEAKNESS
     Dosage: 150 MG, QD
     Route: 065
     Dates: start: 2016

REACTIONS (4)
  - Secretion discharge [Recovered/Resolved]
  - Lymphangitis [Recovered/Resolved]
  - Cutaneous nocardiosis [Recovered/Resolved]
  - Abscess limb [Recovered/Resolved]

NARRATIVE: CASE EVENT DATE: 20171124
